FAERS Safety Report 23055173 (Version 1)
Quarter: 2023Q4

REPORT INFORMATION
  Report Type: Spontaneous
  Country: US (occurrence: US)
  Receive Date: 20231011
  Receipt Date: 20231011
  Transmission Date: 20240109
  Serious: No
  Sender: FDA-Public Use
  Company Number: US-GLAXOSMITHKLINE-USCH2023048027

PATIENT

DRUGS (1)
  1. ADVIL DUAL ACTION WITH ACETAMINOPHEN [Suspect]
     Active Substance: ACETAMINOPHEN\IBUPROFEN
     Indication: Migraine
     Dosage: UNK
     Dates: start: 20231006

REACTIONS (2)
  - Drug effect less than expected [Unknown]
  - Product use in unapproved indication [Unknown]

NARRATIVE: CASE EVENT DATE: 20231006
